FAERS Safety Report 9848791 (Version 2)
Quarter: 2014Q1

REPORT INFORMATION
  Report Type: Spontaneous
  Country: US (occurrence: US)
  Receive Date: 20140128
  Receipt Date: 20140203
  Transmission Date: 20141002
  Serious: Yes (Other)
  Sender: FDA-Public Use
  Company Number: US-RB-062427-14

PATIENT
  Age: 48 Year
  Sex: Male

DRUGS (5)
  1. MUCINEX FAST MAX DM LIQUID [Suspect]
     Indication: PRODUCT USED FOR UNKNOWN INDICATION
     Dosage: MULTIPLE DOSES OF THE PRODUCT OVER A 5 DAY PERIOD; LAST TOOK ABOUT 2 WEEKS AGO
     Route: 048
     Dates: start: 20131228
  2. RISPERDAL [Concomitant]
     Indication: PRODUCT USED FOR UNKNOWN INDICATION
  3. SYNTHROID [Concomitant]
     Indication: PRODUCT USED FOR UNKNOWN INDICATION
  4. METOPROLOL [Concomitant]
     Indication: PRODUCT USED FOR UNKNOWN INDICATION
  5. LORAZEPAM [Concomitant]
     Indication: PRODUCT USED FOR UNKNOWN INDICATION

REACTIONS (3)
  - Agitation [Recovered/Resolved]
  - Unevaluable event [Recovered/Resolved]
  - Diarrhoea [Not Recovered/Not Resolved]
